FAERS Safety Report 21631806 (Version 1)
Quarter: 2022Q4

REPORT INFORMATION
  Report Type: Other
  Country: DE (occurrence: None)
  Receive Date: 20221123
  Receipt Date: 20221123
  Transmission Date: 20230113
  Serious: No
  Sender: FDA-Public Use
  Company Number: DE-ROCHE-3223132

PATIENT
  Age: 29 Year
  Sex: Female

DRUGS (7)
  1. OCRELIZUMAB [Suspect]
     Active Substance: OCRELIZUMAB
     Indication: Relapsing multiple sclerosis
     Route: 042
     Dates: start: 20180726, end: 20180809
  2. OCRELIZUMAB [Suspect]
     Active Substance: OCRELIZUMAB
     Route: 042
     Dates: start: 20190221
  3. PREDNISOLONE [Concomitant]
     Active Substance: PREDNISOLONE
     Route: 041
     Dates: start: 20180726, end: 20180726
  4. PREDNISOLONE [Concomitant]
     Active Substance: PREDNISOLONE
     Route: 041
     Dates: start: 20180809, end: 20180809
  5. DIMETHINDENE [Concomitant]
     Active Substance: DIMETHINDENE
     Route: 041
     Dates: start: 20180809, end: 20180809
  6. DIMETHINDENE [Concomitant]
     Active Substance: DIMETHINDENE
     Route: 041
     Dates: start: 20180726, end: 20180726
  7. ACETAMINOPHEN [Concomitant]
     Active Substance: ACETAMINOPHEN
     Route: 041
     Dates: start: 20180726, end: 20180726

REACTIONS (1)
  - COVID-19 [Recovered/Resolved]

NARRATIVE: CASE EVENT DATE: 20220601
